FAERS Safety Report 17020287 (Version 3)
Quarter: 2023Q4

REPORT INFORMATION
  Report Type: Spontaneous
  Country: IT (occurrence: IT)
  Receive Date: 20191112
  Receipt Date: 20231207
  Transmission Date: 20240109
  Serious: Yes (Other)
  Sender: FDA-Public Use
  Company Number: IT-AMERICAN REGENT INC-20171718

PATIENT
  Age: 51 Year
  Sex: Male
  Weight: 70 kg

DRUGS (4)
  1. FERINJECT [Suspect]
     Active Substance: FERRIC CARBOXYMALTOSE
     Indication: Anaemia
     Dosage: 1 DOSAGE FORMS, 1 TOTAL
     Route: 042
     Dates: start: 20171129, end: 20171129
  2. AZATHIOPRINE [Concomitant]
     Active Substance: AZATHIOPRINE
     Dosage: 150 MG
     Route: 048
  3. ENTYVIO [Concomitant]
     Active Substance: VEDOLIZUMAB
     Indication: Crohn^s disease
     Dosage: AT THE START OF 2017 HE STARTED ENTYVIO (20 ML) (POWDER FOR CONCENTRATE FOR SOLUTION FOR INFUSION)
     Route: 065
     Dates: start: 2017
  4. OFUXAL [Concomitant]
     Dosage: 10 MILLIGRAM
     Route: 048

REACTIONS (3)
  - Laryngospasm [Recovered/Resolved]
  - Flushing [Recovered/Resolved]
  - Erythema [Unknown]

NARRATIVE: CASE EVENT DATE: 20171129
